FAERS Safety Report 15112896 (Version 2)
Quarter: 2018Q3

REPORT INFORMATION
  Report Type: Spontaneous
  Country: DE (occurrence: DE)
  Receive Date: 20180705
  Receipt Date: 20180822
  Transmission Date: 20181010
  Serious: Yes (Other)
  Sender: FDA-Public Use
  Company Number: PHHY2018DE036992

PATIENT
  Age: 84 Year
  Sex: Male
  Weight: 61 kg

DRUGS (4)
  1. BRILIQUE [Interacting]
     Active Substance: TICAGRELOR
     Indication: CORONARY ARTERY DISEASE
  2. ACETYLSALICYLIC ACID [Suspect]
     Active Substance: ASPIRIN
     Indication: MYOCARDIAL INFARCTION
  3. BRILIQUE [Interacting]
     Active Substance: TICAGRELOR
     Indication: ANTICOAGULANT THERAPY
     Dosage: 20 MG, QD
     Route: 048
     Dates: start: 201802
  4. ACETYLSALICYLIC ACID [Suspect]
     Active Substance: ASPIRIN
     Indication: ANTICOAGULANT THERAPY
     Dosage: 100 MG, QD
     Route: 048
     Dates: start: 201802

REACTIONS (3)
  - Skin haemorrhage [Recovered/Resolved]
  - Large intestinal haemorrhage [Recovered/Resolved]
  - Diarrhoea [Recovered/Resolved]

NARRATIVE: CASE EVENT DATE: 201802
